FAERS Safety Report 17745290 (Version 1)
Quarter: 2020Q2

REPORT INFORMATION
  Report Type: Spontaneous
  Country: US (occurrence: US)
  Receive Date: 20200504
  Receipt Date: 20200504
  Transmission Date: 20200714
  Serious: No
  Sender: FDA-Public Use
  Company Number: US-GLENMARK PHARMACEUTICALS-2020GMK046801

PATIENT

DRUGS (1)
  1. COLESEVELAM HYDROCHLORIDE FOR ORAL SUSUPENSION [Suspect]
     Active Substance: COLESEVELAM HYDROCHLORIDE
     Indication: BLOOD CHOLESTEROL INCREASED
     Dosage: 1 DOSAGE FORM, QD (1 PACKET A DAY)
     Route: 048
     Dates: start: 2019

REACTIONS (7)
  - Sensation of foreign body [Unknown]
  - Product physical consistency issue [Unknown]
  - Product physical issue [Unknown]
  - Product use complaint [Unknown]
  - Wrong technique in product usage process [Unknown]
  - Stomatitis [Unknown]
  - Throat irritation [Unknown]
